FAERS Safety Report 4354109-1 (Version None)
Quarter: 2004Q2

REPORT INFORMATION
  Report Type: 
  Country: None (occurrence: None)
  Receive Date: 20040506
  Receipt Date: 20040405
  Transmission Date: 20050107
  Serious: Yes (Other)
  Sender: FDA-Public Use
  Company Number: CA-JNJFOC-20040402217

PATIENT
  Sex: Male
  Weight: 43.09 kg

DRUGS (1)
  1. CONCERTA [Suspect]
     Route: 049
     Dates: start: 20031101

REACTIONS (2)
  - ANOREXIA [None]
  - WEIGHT DECREASED [None]
